FAERS Safety Report 25833231 (Version 1)
Quarter: 2025Q3

REPORT INFORMATION
  Report Type: Spontaneous
  Country: EU (occurrence: EU)
  Receive Date: 20250922
  Receipt Date: 20250922
  Transmission Date: 20251020
  Serious: Yes (Hospitalization, Other)
  Sender: GLAXOSMITHKLINE
  Company Number: EU-GSK-ES2025EME120860

PATIENT
  Age: 68 Year
  Sex: Female

DRUGS (2)
  1. DOSTARLIMAB [Suspect]
     Active Substance: DOSTARLIMAB
     Indication: Endometrial cancer
     Dosage: 500 MG, Q3W 500 MG 1 VIAL EVERY 3 WEEKS
  2. CARBOPLATIN\PACLITAXEL [Suspect]
     Active Substance: CARBOPLATIN\PACLITAXEL
     Indication: Endometrial cancer

REACTIONS (3)
  - Adrenal insufficiency [Recovered/Resolved with Sequelae]
  - Sjogren^s syndrome [Recovered/Resolved with Sequelae]
  - Dry mouth [Recovered/Resolved with Sequelae]
